FAERS Safety Report 11542415 (Version 1)
Quarter: 2015Q3

REPORT INFORMATION
  Report Type: Spontaneous
  Country: NL (occurrence: NL)
  Receive Date: 20150923
  Receipt Date: 20150923
  Transmission Date: 20151125
  Serious: Yes (Hospitalization)
  Sender: FDA-Public Use
  Company Number: NL-PFIZER INC-2015311341

PATIENT
  Age: 54 Year
  Sex: Female
  Weight: 58 kg

DRUGS (3)
  1. OXYCODONE [Interacting]
     Active Substance: OXYCODONE
     Indication: BACK PAIN
     Dosage: 5 MG, 4X/DAY
     Route: 048
     Dates: start: 20150901, end: 20150903
  2. OXYCODONE [Interacting]
     Active Substance: OXYCODONE
     Dosage: 10 MG, 2X/DAY
     Route: 048
     Dates: start: 20150901, end: 20150903
  3. VENLAFAXINE XR PFIZER [Suspect]
     Active Substance: VENLAFAXINE HYDROCHLORIDE
     Indication: ANXIETY
     Dosage: 150 MG, 1X/DAY
     Route: 048
     Dates: start: 19780101

REACTIONS (6)
  - Drug interaction [Recovering/Resolving]
  - Dysstasia [Recovering/Resolving]
  - Anxiety disorder [Unknown]
  - Hyperhidrosis [Unknown]
  - Confusional state [Recovering/Resolving]
  - Serotonin syndrome [Recovering/Resolving]

NARRATIVE: CASE EVENT DATE: 20150901
